FAERS Safety Report 7477194-7 (Version None)
Quarter: 2011Q2

REPORT INFORMATION
  Report Type: 
  Country: None (occurrence: None)
  Receive Date: 20110512
  Receipt Date: 20110304
  Transmission Date: 20111010
  Serious: No
  Sender: FDA-Public Use
  Company Number: US-NOVEN-11US001928

PATIENT

DRUGS (7)
  1. ALBUTEROL [Concomitant]
     Indication: ASTHMA
     Route: 055
  2. DAYTRANA [Suspect]
     Indication: ATTENTION DEFICIT/HYPERACTIVITY DISORDER
     Dosage: 15 MG, QD
     Route: 062
     Dates: start: 20110304
  3. QVAR 40 [Concomitant]
     Indication: ASTHMA
     Route: 055
  4. DAYTRANA [Suspect]
     Dosage: 15 MG, 1/2 PATCH PER DAY
     Dates: start: 20110302, end: 20110303
  5. MUCINEX [Concomitant]
     Indication: ASTHMA
     Dosage: UNK
     Route: 048
  6. PREDNISOLONE [Concomitant]
     Indication: ASTHMA
     Route: 048
  7. PULMICORT [Concomitant]
     Indication: ASTHMA
     Dosage: UNK
     Route: 055

REACTIONS (8)
  - DECREASED APPETITE [None]
  - CRYING [None]
  - DEPRESSED MOOD [None]
  - OFF LABEL USE [None]
  - WRONG TECHNIQUE IN DRUG USAGE PROCESS [None]
  - DRUG PRESCRIBING ERROR [None]
  - ONYCHOPHAGIA [None]
  - ABNORMAL BEHAVIOUR [None]
